FAERS Safety Report 15311904 (Version 2)
Quarter: 2018Q3

REPORT INFORMATION
  Report Type: Spontaneous
  Country: CA (occurrence: CA)
  Receive Date: 20180823
  Receipt Date: 20180827
  Transmission Date: 20181010
  Serious: Yes (Other)
  Sender: FDA-Public Use
  Company Number: CA-TEVA-2018-CA-947588

PATIENT

DRUGS (2)
  1. OXYCODONE HYDROCHLORIDE. [Suspect]
     Active Substance: OXYCODONE HYDROCHLORIDE
     Route: 065
  2. OXYNEO [Suspect]
     Active Substance: OXYCODONE
     Route: 065

REACTIONS (3)
  - Lung adenocarcinoma [Unknown]
  - Drug ineffective [Unknown]
  - Drug effect increased [Unknown]
